FAERS Safety Report 13925429 (Version 3)
Quarter: 2018Q1

REPORT INFORMATION
  Report Type: Spontaneous
  Country: US (occurrence: US)
  Receive Date: 20170831
  Receipt Date: 20180226
  Transmission Date: 20180508
  Serious: No
  Sender: FDA-Public Use
  Company Number: US-BRISTOL-MYERS SQUIBB COMPANY-BMS-2017-078218

PATIENT
  Age: 42 Year
  Sex: Female

DRUGS (1)
  1. ORENCIA [Suspect]
     Active Substance: ABATACEPT
     Indication: RHEUMATOID ARTHRITIS
     Dosage: 125 MG, QWK
     Route: 058
     Dates: start: 20170208

REACTIONS (2)
  - Dyspnoea [Unknown]
  - Vision blurred [Unknown]

NARRATIVE: CASE EVENT DATE: 20170828
